FAERS Safety Report 20895951 (Version 2)
Quarter: 2022Q2

REPORT INFORMATION
  Report Type: Spontaneous
  Country: US (occurrence: US)
  Receive Date: 20220531
  Receipt Date: 20220620
  Transmission Date: 20220721
  Serious: Yes (Hospitalization, Other)
  Sender: FDA-Public Use
  Company Number: US-COLLEGIUM PHARMACEUTICAL, INC.-2022CGM00339

PATIENT
  Age: 61 Year
  Sex: Female
  Weight: 116.1 kg

DRUGS (28)
  1. XTAMPZA ER [Suspect]
     Active Substance: OXYCODONE
     Indication: Pain
     Dosage: 27 MG, 2X/DAY
     Route: 048
     Dates: start: 20200609, end: 20220304
  2. XTAMPZA ER [Suspect]
     Active Substance: OXYCODONE
     Dosage: 27 MG, 3X/DAY
     Route: 048
     Dates: start: 20220419, end: 20220422
  3. NORCO [Suspect]
     Active Substance: ACETAMINOPHEN\HYDROCODONE BITARTRATE
     Indication: Dermoid cyst
     Dosage: 1 TABLET EVERY 6 HOURS AS NEEDED
     Route: 048
  4. NORCO [Suspect]
     Active Substance: ACETAMINOPHEN\HYDROCODONE BITARTRATE
     Indication: Pain
  5. LYRICA [Suspect]
     Active Substance: PREGABALIN
     Indication: Neuropathy peripheral
     Dosage: 200 MG, 3X/DAY
     Route: 048
  6. SEROQUEL [Concomitant]
     Active Substance: QUETIAPINE FUMARATE
     Dosage: 50-150 MG, 1X/DAY AT BEDTIME
  7. PROAIR HFA [Concomitant]
     Active Substance: ALBUTEROL SULFATE
     Dosage: 2 PUFFS INTO THE LUNGS EVERY 4 HOURS AS NEEDED FOR WHEEZING OR SHORTNESS OF BREATH
  8. ASPIRIN [Concomitant]
     Active Substance: ASPIRIN
     Dosage: 81 MG, 1X/DAY
     Route: 048
  9. LIPITOR [Concomitant]
     Active Substance: ATORVASTATIN CALCIUM
     Dosage: 80 MG, 1X/DAY
     Route: 048
  10. BUSPAR [Concomitant]
     Active Substance: BUSPIRONE HYDROCHLORIDE
     Dosage: 7.5 MG, 3X/DAY
     Route: 048
  11. CALCIUM-MAGNESIUM-ZINC [Concomitant]
     Dosage: 1 TABLETS, 3X/DAY
     Route: 048
  12. TEMOVATE [Concomitant]
     Active Substance: CLOBETASOL PROPIONATE
     Dosage: APPLY TOPICALLY TO AFFTECTED AREA, 2X/DAY, AVOID FACE
     Route: 061
  13. VITAMIN B12 [Concomitant]
     Active Substance: CYANOCOBALAMIN
     Dosage: 1000 ?G, 1X/DAY
     Route: 048
  14. VOLTAREN [Concomitant]
     Active Substance: DICLOFENAC SODIUM
     Dosage: 2 GRAMS TO AFFECTED AREA, 2X/DAY AS NEEDED FOR PAIN AND INFLAMMATION
     Route: 061
  15. DULAGLUTIDE [Concomitant]
     Active Substance: DULAGLUTIDE
     Dosage: 1.5 MG INTO THE SKIN EVERY 7 DAYS
  16. FERATAB [Concomitant]
     Dosage: 325 MG, 1X/DAY
     Route: 048
  17. PROZAC [Concomitant]
     Active Substance: FLUOXETINE HYDROCHLORIDE
     Dosage: 60 MG, 1X/DAY EVERY MORNING AT THE SAME TIME
     Route: 048
  18. FLONASE [Concomitant]
     Active Substance: FLUTICASONE PROPIONATE
     Dosage: 100 ?G, 1X/DAY IN EACH NARE
     Route: 045
  19. LASIX [Concomitant]
     Active Substance: FUROSEMIDE
     Dosage: 20 MG, 1X/DAY AS NEEDED FOR SWELLING
     Route: 048
  20. EMGALITY [Concomitant]
     Active Substance: GALCANEZUMAB-GNLM
     Dosage: 120 MG, 1X/MONTH INTO THE SKIN
  21. NOVOLOG MIX FLEXPEN 70/30 [Concomitant]
     Dosage: 50 DOSAGE UNITS INTO THE SKIN, 2X/DAY AS NEEDED
  22. LISINOPRIL [Concomitant]
     Active Substance: LISINOPRIL
     Dosage: 2.5 MG, 1X/DAY
     Route: 048
  23. MAGNESIUM OXIDE [Concomitant]
     Active Substance: MAGNESIUM OXIDE
     Dosage: 800 MG, 1X/DAY
     Route: 048
  24. GLUCOPHAGE [Concomitant]
     Active Substance: METFORMIN HYDROCHLORIDE
     Dosage: 1000 MG, 2X/DAY WITH MEALS
     Route: 048
  25. MYCOSTATIN [Concomitant]
     Active Substance: NYSTATIN
     Dosage: APPLY TOPICALLY 2-3 TIMES DAILY UNTIL HEALING IS COMPLETE
     Route: 061
  26. NURTEC ODT [Concomitant]
     Active Substance: RIMEGEPANT SULFATE
     Dosage: 75 MG BY TRANSLINQUAL ROUTE ON TOP OF TONGUE, ONCE AS NEEDED; MAX 1 DOSE/24 HRS
  27. VITAMIN E [Concomitant]
     Active Substance: .ALPHA.-TOCOPHEROL
     Dosage: 400 IU, 1X/DAY
     Route: 048
  28. XALATAN [Concomitant]
     Active Substance: LATANOPROST
     Dosage: UNK
     Dates: end: 20220424

REACTIONS (11)
  - Encephalopathy [Recovered/Resolved]
  - Escherichia urinary tract infection [Recovered/Resolved]
  - Acute kidney injury [Recovered/Resolved]
  - Unresponsive to stimuli [Recovered/Resolved]
  - Dyskinesia [Recovered/Resolved]
  - Pulmonary congestion [Recovered/Resolved]
  - Respiratory failure [Recovered/Resolved]
  - Atypical pneumonia [Recovered/Resolved]
  - Therapy interrupted [Recovered/Resolved]
  - Somnolence [Recovered/Resolved]
  - Off label use [Recovered/Resolved]

NARRATIVE: CASE EVENT DATE: 20220304
